FAERS Safety Report 7924350-7 (Version None)
Quarter: 2011Q4

REPORT INFORMATION
  Report Type: 
  Country: None (occurrence: None)
  Receive Date: 20111117
  Receipt Date: 20110321
  Transmission Date: 20120403
  Serious: No
  Sender: FDA-Public Use
  Company Number: US-AMGEN-USASP2011015216

PATIENT
  Age: 60 Year
  Sex: Male

DRUGS (1)
  1. ENBREL [Suspect]
     Indication: ANKYLOSING SPONDYLITIS
     Dosage: 50 MG, QWK
     Dates: start: 20100101

REACTIONS (7)
  - DIZZINESS [None]
  - INFLUENZA LIKE ILLNESS [None]
  - ASTHENIA [None]
  - VOMITING [None]
  - ABDOMINAL PAIN [None]
  - INJECTION SITE PAIN [None]
  - INJECTION SITE MASS [None]
